FAERS Safety Report 15121738 (Version 2)
Quarter: 2018Q3

REPORT INFORMATION
  Report Type: Spontaneous
  Country: GB (occurrence: GB)
  Receive Date: 20180709
  Receipt Date: 20180911
  Transmission Date: 20181010
  Serious: Yes (Other)
  Sender: FDA-Public Use
  Company Number: GB-PFIZER INC-17533

PATIENT
  Age: 20 Year
  Sex: Male

DRUGS (4)
  1. COLOMYCIN [Concomitant]
     Indication: PSEUDOMONAS INFECTION
     Dosage: 2 MEGAUNITS FREQ: TID
     Route: 042
     Dates: start: 200004
  2. TOBRAMYCIN. [Interacting]
     Active Substance: TOBRAMYCIN
     Indication: INFECTIVE PULMONARY EXACERBATION OF CYSTIC FIBROSIS
  3. DICLOFENAC [Interacting]
     Active Substance: DICLOFENAC
     Indication: MUSCULOSKELETAL CHEST PAIN
     Dosage: UNK
     Route: 065
     Dates: start: 200004
  4. TOBRAMYCIN. [Suspect]
     Active Substance: TOBRAMYCIN
     Indication: PSEUDOMONAS INFECTION
     Dosage: 180MG, FREQ: TID (9.4 MG/KG/DAY)
     Route: 042
     Dates: start: 200004

REACTIONS (2)
  - Drug interaction [Recovering/Resolving]
  - Acute kidney injury [Recovering/Resolving]

NARRATIVE: CASE EVENT DATE: 200004
